FAERS Safety Report 9570758 (Version 2)
Quarter: 2013Q4

REPORT INFORMATION
  Report Type: Spontaneous
  Country: AU (occurrence: AU)
  Receive Date: 20131001
  Receipt Date: 20131219
  Transmission Date: 20140711
  Serious: Yes (Disabling)
  Sender: FDA-Public Use
  Company Number: AU-009507513-1309AUS014131

PATIENT
  Age: 57 Year
  Sex: Female

DRUGS (1)
  1. EZETROL [Suspect]
     Dosage: UNK
     Route: 048
     Dates: start: 20130909, end: 20130919

REACTIONS (3)
  - Abasia [Unknown]
  - Dry mouth [Unknown]
  - Myalgia [Unknown]
